FAERS Safety Report 6046885-7 (Version None)
Quarter: 2009Q1

REPORT INFORMATION
  Report Type: 
  Country: None (occurrence: None)
  Receive Date: 20090122
  Receipt Date: 20090116
  Transmission Date: 20090719
  Serious: Yes (Hospitalization)
  Sender: FDA-Public Use
  Company Number: B0546628A

PATIENT
  Age: 83 Year
  Sex: Male

DRUGS (3)
  1. CLAMOXYL [Suspect]
     Route: 048
     Dates: start: 20081016, end: 20081025
  2. CORTICOIDS [Concomitant]
     Indication: BRONCHOSPASM
     Route: 065
  3. ANTIVITAMINS K [Concomitant]
     Indication: ATRIAL FIBRILLATION
     Route: 065
     Dates: start: 20080101

REACTIONS (4)
  - ACQUIRED HAEMOPHILIA [None]
  - CIRCULATING ANTICOAGULANT POSITIVE [None]
  - COAGULATION FACTOR VIII LEVEL DECREASED [None]
  - HAEMATOMA [None]
